FAERS Safety Report 14255779 (Version 4)
Quarter: 2017Q4

REPORT INFORMATION
  Report Type: Report from Study
  Country: FR (occurrence: FR)
  Receive Date: 20171206
  Receipt Date: 20171229
  Transmission Date: 20180321
  Serious: Yes (Hospitalization, Other)
  Sender: FDA-Public Use
  Company Number: FR-ASTELLAS-2017US050328

PATIENT
  Age: 68 Year
  Sex: Female

DRUGS (32)
  1. TACROLIMUS. [Suspect]
     Active Substance: TACROLIMUS
     Indication: RENAL TRANSPLANT
     Route: 065
     Dates: start: 20160830
  2. TACROLIMUS. [Suspect]
     Active Substance: TACROLIMUS
     Route: 048
     Dates: start: 20161003, end: 20161014
  3. TACROLIMUS. [Suspect]
     Active Substance: TACROLIMUS
     Route: 048
  4. CORTANCYL [Concomitant]
     Active Substance: PREDNISONE
     Dosage: 9 UNSPECIFIED UNIT, ONCE DAILY
     Route: 065
     Dates: start: 20161022, end: 20161029
  5. CORTANCYL [Concomitant]
     Active Substance: PREDNISONE
     Dosage: 5 UNSPECIFIED UNIT, ONCE DAILY
     Route: 065
     Dates: start: 20161125, end: 20161130
  6. IMUREL                             /00001501/ [Concomitant]
     Active Substance: AZATHIOPRINE SODIUM
     Indication: IMMUNOSUPPRESSION
     Dosage: 50 UNSPECIFIED UNIT, ONCE DAILY
     Route: 065
     Dates: start: 20170105
  7. TACROLIMUS. [Suspect]
     Active Substance: TACROLIMUS
     Route: 065
     Dates: start: 20161126
  8. FOSFOMYCIN [Concomitant]
     Active Substance: FOSFOMYCIN
     Indication: PRODUCT USED FOR UNKNOWN INDICATION
     Dosage: UNK UNK, UNKNOWN FREQ.
     Route: 065
  9. CORTANCYL [Concomitant]
     Active Substance: PREDNISONE
     Dosage: 11 UNSPECIFIED UNIT, ONCE DAILY
     Route: 065
     Dates: start: 20161015, end: 20161021
  10. TACROLIMUS. [Suspect]
     Active Substance: TACROLIMUS
     Route: 048
     Dates: start: 20170511
  11. TACROLIMUS. [Suspect]
     Active Substance: TACROLIMUS
     Route: 048
     Dates: start: 20170328
  12. AUGMENTIN [Concomitant]
     Active Substance: AMOXICILLIN\CLAVULANATE POTASSIUM
     Indication: PRODUCT USED FOR UNKNOWN INDICATION
     Dosage: UNK UNK, UNKNOWN FREQ.
     Route: 065
  13. CELLCEPT [Concomitant]
     Active Substance: MYCOPHENOLATE MOFETIL\MYCOPHENOLATE MOFETIL HYDROCHLORIDE
     Dosage: 2000 UNSPECIFIED UNIT, ONCE DAILY
     Route: 065
     Dates: start: 20161004, end: 20161014
  14. CORTANCYL [Concomitant]
     Active Substance: PREDNISONE
     Dosage: 15 UNSPECIFIED UNIT, ONCE DAILY
     Route: 065
     Dates: start: 20161009, end: 20161014
  15. TACROLIMUS. [Suspect]
     Active Substance: TACROLIMUS
     Route: 048
     Dates: start: 20161115
  16. TACROLIMUS. [Suspect]
     Active Substance: TACROLIMUS
     Route: 048
     Dates: start: 20170323
  17. TACROLIMUS. [Suspect]
     Active Substance: TACROLIMUS
     Route: 048
     Dates: start: 20170721
  18. CORTANCYL [Concomitant]
     Active Substance: PREDNISONE
     Dosage: 5 UNSPECIFIED UNIT, ONCE DAILY
     Route: 065
     Dates: start: 20161201
  19. TACROLIMUS. [Suspect]
     Active Substance: TACROLIMUS
     Route: 065
     Dates: start: 20161015
  20. TACROLIMUS. [Suspect]
     Active Substance: TACROLIMUS
     Route: 048
     Dates: start: 20170104, end: 20170216
  21. TACROLIMUS. [Suspect]
     Active Substance: TACROLIMUS
     Route: 048
     Dates: start: 20170219
  22. TACROLIMUS. [Suspect]
     Active Substance: TACROLIMUS
     Route: 065
     Dates: start: 20170223
  23. CORTANCYL [Concomitant]
     Active Substance: PREDNISONE
     Dosage: 11 UNSPECIFIED UNIT, ONCE DAILY
     Route: 065
     Dates: start: 20160913, end: 20160927
  24. CORTANCYL [Concomitant]
     Active Substance: PREDNISONE
     Dosage: 7 UNSPECIFIED UNIT, ONCE DAILY
     Route: 065
     Dates: start: 20161030, end: 20161104
  25. TACROLIMUS. [Suspect]
     Active Substance: TACROLIMUS
     Route: 048
     Dates: start: 20170720
  26. CELLCEPT [Concomitant]
     Active Substance: MYCOPHENOLATE MOFETIL\MYCOPHENOLATE MOFETIL HYDROCHLORIDE
     Indication: IMMUNOSUPPRESSION
     Dosage: 3000 UNSPECIFIED UNIT, ONCE DAILY
     Route: 065
     Dates: end: 20161003
  27. CELLCEPT [Concomitant]
     Active Substance: MYCOPHENOLATE MOFETIL\MYCOPHENOLATE MOFETIL HYDROCHLORIDE
     Dosage: 1000 UNSPECIFIED UNIT, ONCE DAILY
     Route: 065
     Dates: start: 20161015, end: 20170104
  28. CORTANCYL [Concomitant]
     Active Substance: PREDNISONE
     Indication: IMMUNOSUPPRESSION
     Dosage: 13 UNSPECIFIED UNIT, ONCE DAILY
     Route: 065
     Dates: start: 20160904, end: 20160912
  29. CORTANCYL [Concomitant]
     Active Substance: PREDNISONE
     Dosage: 5 UNSPECIFIED UNIT, ONCE DAILY
     Route: 065
     Dates: start: 20161105, end: 20161124
  30. TACROLIMUS. [Suspect]
     Active Substance: TACROLIMUS
     Route: 065
     Dates: start: 20161201
  31. TACROLIMUS. [Suspect]
     Active Substance: TACROLIMUS
     Route: 048
     Dates: start: 20170216
  32. CORTANCYL [Concomitant]
     Active Substance: PREDNISONE
     Dosage: 9 UNSPECIFIED UNIT, ONCE DAILY
     Route: 065
     Dates: start: 20160928, end: 20161008

REACTIONS (4)
  - Overdose [Unknown]
  - General physical health deterioration [Recovered/Resolved]
  - Asthenia [Recovered/Resolved]
  - Blood creatinine increased [Unknown]

NARRATIVE: CASE EVENT DATE: 20161003
